FAERS Safety Report 9705586 (Version 1)
Quarter: 2013Q4

REPORT INFORMATION
  Report Type: Spontaneous
  Country: US (occurrence: US)
  Receive Date: 20131122
  Receipt Date: 20131122
  Transmission Date: 20140711
  Serious: No
  Sender: FDA-Public Use
  Company Number: US-GILEAD-2008-0017048

PATIENT
  Sex: Female
  Weight: 68.04 kg

DRUGS (9)
  1. LETAIRIS [Suspect]
     Indication: PULMONARY ARTERIAL HYPERTENSION
     Route: 048
     Dates: start: 20080606
  2. REVATIO [Concomitant]
     Route: 048
  3. WARFARIN [Concomitant]
     Route: 048
  4. LASIX [Concomitant]
     Route: 048
  5. LISINOPRIL [Concomitant]
     Route: 048
  6. ALBUTEROL [Concomitant]
     Route: 055
  7. SYNTHROID [Concomitant]
     Route: 048
  8. RANITIDINE [Concomitant]
     Route: 048
  9. NASONEX [Concomitant]
     Route: 055

REACTIONS (1)
  - Nasal congestion [Unknown]
